FAERS Safety Report 4882532-5 (Version None)
Quarter: 2006Q1

REPORT INFORMATION
  Report Type: 
  Country: None (occurrence: None)
  Receive Date: 20060113
  Receipt Date: 20060108
  Transmission Date: 20060701
  Serious: Yes (Other)
  Sender: FDA-Public Use
  Company Number: 2006003573

PATIENT
  Age: 15 Year
  Sex: Male
  Weight: 81.6475 kg

DRUGS (1)
  1. DRAMAMINE [Suspect]
     Dosage: ORAL
     Route: 048
     Dates: start: 20060107, end: 20060108

REACTIONS (4)
  - ABNORMAL BEHAVIOUR [None]
  - INTENTIONAL DRUG MISUSE [None]
  - SELF-MEDICATION [None]
  - SOMNOLENCE [None]
